FAERS Safety Report 4453777-3 (Version None)
Quarter: 2004Q3

REPORT INFORMATION
  Report Type: 
  Country: None (occurrence: None)
  Receive Date: 20040920
  Receipt Date: 20040507
  Transmission Date: 20050211
  Serious: Yes (Other)
  Sender: FDA-Public Use
  Company Number: PHEH2004US05151

PATIENT
  Age: 78 Year
  Sex: Female

DRUGS (6)
  1. ZELNORM [Suspect]
     Indication: ABDOMINAL DISTENSION
     Dosage: 3 MG, BID
     Route: 048
     Dates: start: 20040318, end: 20040505
  2. NEXIUM [Concomitant]
  3. VIOXX [Concomitant]
  4. ZYRTEC [Concomitant]
  5. ZOLOFT [Concomitant]
  6. AMBIEN [Concomitant]

REACTIONS (6)
  - ABDOMINAL PAIN [None]
  - BIOPSY COLON ABNORMAL [None]
  - COLITIS [None]
  - COLONOSCOPY ABNORMAL [None]
  - DIARRHOEA [None]
  - RECTAL HAEMORRHAGE [None]
